FAERS Safety Report 21270954 (Version 1)
Quarter: 2022Q3

REPORT INFORMATION
  Report Type: Spontaneous
  Country: US (occurrence: None)
  Receive Date: 20220830
  Receipt Date: 20220830
  Transmission Date: 20221026
  Serious: Yes (Other)
  Sender: FDA-Public Use
  Company Number: None

PATIENT
  Age: 68 Year
  Sex: Male

DRUGS (7)
  1. HUMIRA [Suspect]
     Active Substance: ADALIMUMAB
     Indication: Osteoarthritis
     Dosage: 40 MG/0.4ML SUBCUTANEOUS??INJECT 1 SYRINGE SUBCUTANEOUSLY EVERY TWO WEEKS
     Route: 058
     Dates: start: 20190302
  2. HUMIRA [Suspect]
     Active Substance: ADALIMUMAB
     Dosage: OTHER QUANTITY : 1 SYRINGE;?FREQUENCY : EVERY OTHER WEEK;?
     Route: 058
  3. ASPIRIN [Concomitant]
     Active Substance: ASPIRIN
  4. FINASTERIDE [Concomitant]
     Active Substance: FINASTERIDE
  5. NEXIUM [Concomitant]
     Active Substance: ESOMEPRAZOLE MAGNESIUM
  6. SIMVASTATIN [Concomitant]
     Active Substance: SIMVASTATIN
  7. VIT D [Concomitant]

REACTIONS (2)
  - Intentional dose omission [None]
  - COVID-19 [None]

NARRATIVE: CASE EVENT DATE: 20220601
